FAERS Safety Report 11821520 (Version 1)
Quarter: 2015Q4

REPORT INFORMATION
  Report Type: Spontaneous
  Country: US (occurrence: US)
  Receive Date: 20151210
  Receipt Date: 20151210
  Transmission Date: 20160305
  Serious: No
  Sender: FDA-Public Use
  Company Number: US-JNJFOC-20150419167

PATIENT
  Age: 85 Year
  Sex: Female

DRUGS (16)
  1. HCT [Concomitant]
     Active Substance: HYDROCHLOROTHIAZIDE
  2. GLIPIZIDE. [Concomitant]
     Active Substance: GLIPIZIDE
  3. CENTRUM (MINERALS NOS, VITAMINS NOS) [Concomitant]
  4. CRANBERRY/VITAMIN C [Concomitant]
  5. FLONASE [Concomitant]
     Active Substance: FLUTICASONE PROPIONATE
  6. LIPITOR [Concomitant]
     Active Substance: ATORVASTATIN CALCIUM
  7. ACTOS [Concomitant]
     Active Substance: PIOGLITAZONE HYDROCHLORIDE
  8. PERCOCET [Concomitant]
     Active Substance: ACETAMINOPHEN\OXYCODONE HYDROCHLORIDE
  9. GABAPENTIN. [Concomitant]
     Active Substance: GABAPENTIN
  10. LOVAZA [Concomitant]
     Active Substance: OMEGA-3-ACID ETHYL ESTERS
  11. NYSTATIN. [Concomitant]
     Active Substance: NYSTATIN
  12. ASPIRIN. [Concomitant]
     Active Substance: ASPIRIN
  13. DIOVAN [Concomitant]
     Active Substance: VALSARTAN
  14. LUMIGAN [Concomitant]
     Active Substance: BIMATOPROST
  15. IMBRUVICA [Suspect]
     Active Substance: IBRUTINIB
     Indication: CHRONIC LYMPHOCYTIC LEUKAEMIA
     Route: 048
     Dates: start: 20150325
  16. METFORMIN [Concomitant]
     Active Substance: METFORMIN HYDROCHLORIDE

REACTIONS (3)
  - Pollakiuria [Not Recovered/Not Resolved]
  - Bladder pain [Not Recovered/Not Resolved]
  - Haematuria [Not Recovered/Not Resolved]

NARRATIVE: CASE EVENT DATE: 20150410
